FAERS Safety Report 15202242 (Version 1)
Quarter: 2018Q3

REPORT INFORMATION
  Report Type: Spontaneous
  Country: US (occurrence: US)
  Receive Date: 20180627
  Receipt Date: 20180627
  Transmission Date: 20181010
  Serious: No
  Sender: FDA-Public Use
  Company Number: None

PATIENT
  Age: 58 Year
  Sex: Female
  Weight: 56.25 kg

DRUGS (8)
  1. VYVANSE 40MG [Concomitant]
     Dates: start: 20161125
  2. FLUOXETINE [Concomitant]
     Active Substance: FLUOXETINE HYDROCHLORIDE
     Dates: start: 19900101
  3. LEVOTHYROXINE 0.75MG [Concomitant]
     Dates: start: 20150731
  4. LIOTHYRONINE 10MCG [Concomitant]
     Dates: start: 20150731
  5. PROMETRIUM 100MG [Concomitant]
     Dates: start: 20130113
  6. VALSARTAN/HCTZ 160/25 [Concomitant]
     Dates: start: 20000101
  7. CLONAZEPAM. [Suspect]
     Active Substance: CLONAZEPAM
     Indication: RESTLESS LEGS SYNDROME
     Route: 048
     Dates: start: 20180518, end: 20180523
  8. CLONAZEPAM. [Suspect]
     Active Substance: CLONAZEPAM
     Indication: INSOMNIA
     Route: 048
     Dates: start: 20180518, end: 20180523

REACTIONS (3)
  - Restlessness [None]
  - Insomnia [None]
  - Drug effect incomplete [None]

NARRATIVE: CASE EVENT DATE: 20180518
